FAERS Safety Report 7225038-0 (Version None)
Quarter: 2011Q1

REPORT INFORMATION
  Report Type: 
  Country: None (occurrence: None)
  Receive Date: 20110107
  Receipt Date: 20110107
  Transmission Date: 20110831
  Serious: Yes (Hospitalization, Disabling, Other)
  Sender: FDA-Public Use
  Company Number: None

PATIENT
  Age: 60 Year
  Sex: Male
  Weight: 83.4619 kg

DRUGS (3)
  1. CETUXIMAB 2MG /ML BRISTOL MYERS SQUIBB [Suspect]
     Indication: METASTASES TO LUNG
     Dosage: 250MG/M2 WEEKLY IV DRIP
     Route: 041
     Dates: start: 20100928, end: 20101208
  2. CETUXIMAB 2MG /ML BRISTOL MYERS SQUIBB [Suspect]
     Indication: METASTASES TO LIVER
     Dosage: 250MG/M2 WEEKLY IV DRIP
     Route: 041
     Dates: start: 20100928, end: 20101208
  3. CETUXIMAB 2MG /ML BRISTOL MYERS SQUIBB [Suspect]
     Indication: COLON CANCER
     Dosage: 250MG/M2 WEEKLY IV DRIP
     Route: 041
     Dates: start: 20100928, end: 20101208

REACTIONS (2)
  - PNEUMONIA [None]
  - BILIARY FISTULA [None]
